FAERS Safety Report 8724208 (Version 2)
Quarter: 2013Q1

REPORT INFORMATION
  Report Type: Spontaneous
  Country: BR (occurrence: BR)
  Receive Date: 20120815
  Receipt Date: 20130206
  Transmission Date: 20140127
  Serious: Yes (Death, Other)
  Sender: FDA-Public Use
  Company Number: BR-PFIZER INC-2012195362

PATIENT
  Age: 51 Year
  Sex: Male

DRUGS (6)
  1. SUTENT [Suspect]
     Indication: RENAL CANCER
     Dosage: 1 TABLET OF 50 MG, 1X/DAY
     Route: 048
     Dates: start: 20120701
  2. DECADRON [Concomitant]
     Dosage: 4 MG, 1X/DAY
  3. HIDANTAL [Concomitant]
     Dosage: 100 MG, 3X/DAY (3 DF DAILY)
  4. OMEPRAZOLE [Concomitant]
     Dosage: 20 MG, 1X/DAY
  5. MAREVAN ^NYCOMED^ [Concomitant]
     Dosage: HALF TABLET FOR 1 DAY, AND 1 TABLET IN THE OTHER DAYS
  6. PURAN T4 [Concomitant]

REACTIONS (4)
  - Death [Fatal]
  - Oral candidiasis [Recovered/Resolved]
  - Acne [Unknown]
  - Dry skin [Unknown]
